FAERS Safety Report 9559234 (Version 2)
Quarter: 2013Q4

REPORT INFORMATION
  Report Type: Report from Study
  Country: US (occurrence: US)
  Receive Date: 20130927
  Receipt Date: 20131007
  Transmission Date: 20140711
  Serious: Yes (Death, Hospitalization)
  Sender: FDA-Public Use
  Company Number: PHEH2013US020193

PATIENT
  Sex: Female
  Weight: 47 kg

DRUGS (5)
  1. AFINITOR [Suspect]
     Indication: BREAST CANCER METASTATIC
     Dosage: 7.5 MG, DAILY
     Route: 048
     Dates: start: 201209
  2. EXEMESTANE [Concomitant]
     Indication: BREAST CANCER METASTATIC
     Dosage: 25 MG, DAILY
     Route: 048
     Dates: start: 201209
  3. ATIVAN [Concomitant]
     Indication: ANXIETY
     Dosage: 1 MG, DAILY
     Route: 048
  4. COUMADIN [Concomitant]
     Dosage: 2 MG, DAILY
     Route: 048
  5. ALDACTONE [Concomitant]
     Indication: ASCITES
     Dosage: 25 MG, BID
     Route: 048

REACTIONS (1)
  - Metastases to liver [Fatal]
